FAERS Safety Report 25834940 (Version 1)
Quarter: 2025Q3

REPORT INFORMATION
  Report Type: Spontaneous
  Country: CN (occurrence: CN)
  Receive Date: 20250923
  Receipt Date: 20250923
  Transmission Date: 20251020
  Serious: Yes (Other)
  Sender: TAKEDA
  Company Number: CN-HUTCHMED LIMITED-HMP2025CN02329

PATIENT
  Age: 21 Year
  Sex: Male

DRUGS (5)
  1. FRUQUINTINIB [Suspect]
     Active Substance: FRUQUINTINIB
     Indication: Adenocarcinoma of colon
     Dosage: 5 MILLIGRAM, QOD
     Dates: start: 202407
  2. TUCIDINOSTAT [Suspect]
     Active Substance: TUCIDINOSTAT
     Indication: Adenocarcinoma of colon
     Dosage: 60 MILLIGRAM, 1/WEEK
     Dates: start: 202407
  3. TORIPALIMAB [Suspect]
     Active Substance: TORIPALIMAB
     Indication: Adenocarcinoma of colon
     Dosage: 240 MILLIGRAM, Q3WEEKS
     Dates: start: 202407
  4. RALTITREXED [Suspect]
     Active Substance: RALTITREXED
     Indication: Adenocarcinoma of colon
     Dosage: 4 MILLIGRAM, Q3WEEKS
     Dates: start: 202407
  5. PACLITAXEL [Suspect]
     Active Substance: PACLITAXEL
     Indication: Adenocarcinoma of colon
     Dosage: 200 MILLIGRAM, Q3WEEKS
     Dates: start: 202407

REACTIONS (2)
  - Neutropenia [Unknown]
  - Thrombocytopenia [Unknown]
